FAERS Safety Report 5627581-4 (Version None)
Quarter: 2008Q1

REPORT INFORMATION
  Report Type: 
  Country: None (occurrence: None)
  Receive Date: 20080215
  Receipt Date: 20080207
  Transmission Date: 20080703
  Serious: Yes (Hospitalization, Other)
  Sender: FDA-Public Use
  Company Number: CA-JNJFOC-20071104036

PATIENT
  Sex: Female

DRUGS (21)
  1. REMICADE [Suspect]
     Dosage: LOADING DOSES REPEATED
     Route: 042
  2. REMICADE [Suspect]
     Route: 042
  3. REMICADE [Suspect]
     Indication: RHEUMATOID ARTHRITIS
     Route: 042
  4. FOLIC ACID [Concomitant]
     Route: 048
  5. PINDOLOL [Concomitant]
     Route: 048
  6. ASPIRIN [Concomitant]
     Route: 048
  7. FERROUS SULFATE TAB [Concomitant]
     Route: 048
  8. VITAMIN D [Concomitant]
     Dosage: 1000 UNITS
     Route: 048
  9. WARFARIN SODIUM [Concomitant]
     Route: 048
  10. NITROGLYCERIN [Concomitant]
  11. NITROGLYCERIN [Concomitant]
  12. CALCIUM CARBONATE [Concomitant]
     Route: 048
  13. METHOTREXATE [Concomitant]
     Route: 048
  14. ADVAIR DISKUS 100/50 [Concomitant]
  15. QUININE SULFATE [Concomitant]
     Dosage: HOUR OF SLEEP
     Route: 048
  16. QUININE SULFATE [Concomitant]
     Route: 048
  17. PANTOPRAZOLE [Concomitant]
     Route: 048
  18. RISENDRONATE [Concomitant]
     Route: 048
  19. LASIX [Concomitant]
     Route: 048
  20. POTASSIUM CHLORIDE [Concomitant]
     Route: 065
  21. TYLENOL (CAPLET) [Concomitant]
     Route: 048

REACTIONS (10)
  - CLOSTRIDIAL INFECTION [None]
  - DELIRIUM [None]
  - DIZZINESS [None]
  - FALL [None]
  - HAEMATOMA [None]
  - PNEUMONIA [None]
  - TRANSIENT ISCHAEMIC ATTACK [None]
  - URINARY TRACT INFECTION [None]
  - UROSEPSIS [None]
  - VESTIBULAR DISORDER [None]
